FAERS Safety Report 7016164-X (Version None)
Quarter: 2010Q3

REPORT INFORMATION
  Report Type: 
  Country: None (occurrence: None)
  Receive Date: 20100927
  Receipt Date: 20100914
  Transmission Date: 20110219
  Serious: Yes (Death)
  Sender: FDA-Public Use
  Company Number: FR-WATSON-2010-12599

PATIENT
  Age: 75 Year
  Sex: Male

DRUGS (2)
  1. FLUOROURACIL [Suspect]
     Indication: COLON CANCER
     Dosage: 400 MG/MM/15 MIN INFUSION
  2. FLUOROURACIL [Suspect]
     Dosage: 2400 MG/MM/48HOUR  INFUSION

REACTIONS (2)
  - DRUG TOXICITY [None]
  - MULTI-ORGAN FAILURE [None]
